FAERS Safety Report 24402049 (Version 3)
Quarter: 2025Q3

REPORT INFORMATION
  Report Type: Spontaneous
  Country: US (occurrence: US)
  Receive Date: 20241007
  Receipt Date: 20250704
  Transmission Date: 20251020
  Serious: No
  Sender: AMGEN
  Company Number: US-AMGEN-USASP2024196634

PATIENT
  Age: 66 Year
  Sex: Male

DRUGS (8)
  1. OTEZLA [Suspect]
     Active Substance: APREMILAST
     Indication: Psoriasis
     Dosage: 30 MILLIGRAM, BID
     Route: 048
     Dates: start: 20240907
  2. CLOBETASOL [Concomitant]
     Active Substance: CLOBETASOL
     Route: 065
  3. FISH OIL [Concomitant]
     Active Substance: FISH OIL
     Route: 065
  4. TADALAFIL [Concomitant]
     Active Substance: TADALAFIL
     Route: 065
  5. VITAMIN C [Concomitant]
     Active Substance: ASCORBIC ACID
     Route: 065
  6. VITAMIN D [Concomitant]
     Active Substance: VITAMIN D NOS
     Route: 065
  7. MENAQUINONE 6 [Concomitant]
     Active Substance: MENAQUINONE 6
     Route: 065
  8. Triamcinolon [Concomitant]

REACTIONS (4)
  - Upper respiratory tract infection [Unknown]
  - Headache [Unknown]
  - Product dose omission issue [Unknown]
  - Therapy non-responder [Unknown]

NARRATIVE: CASE EVENT DATE: 20240101
